FAERS Safety Report 4842960-0 (Version None)
Quarter: 2005Q4

REPORT INFORMATION
  Report Type: 
  Country: None (occurrence: None)
  Receive Date: 20051130
  Receipt Date: 20051118
  Transmission Date: 20060501
  Serious: No
  Sender: FDA-Public Use
  Company Number: FR-2005-024543

PATIENT
  Age: 24 Year
  Sex: Female

DRUGS (1)
  1. MIRENA [Suspect]
     Dosage: 20 ?G/DAY, INTRA-UTERINE
     Route: 015
     Dates: start: 20050501

REACTIONS (2)
  - COMPLICATION OF DEVICE REMOVAL [None]
  - MENOMETRORRHAGIA [None]
